FAERS Safety Report 11988132 (Version 1)
Quarter: 2016Q1

REPORT INFORMATION
  Report Type: Spontaneous
  Country: None (occurrence: None)
  Receive Date: 20160201
  Receipt Date: 20160201
  Transmission Date: 20160526
  Serious: No
  Sender: FDA-Public Use
  Company Number: None

PATIENT
  Sex: Female

DRUGS (1)
  1. GLYBURIDE. [Suspect]
     Active Substance: GLYBURIDE

REACTIONS (2)
  - Weight increased [None]
  - Drug ineffective [None]
